FAERS Safety Report 17039666 (Version 1)
Quarter: 2019Q4

REPORT INFORMATION
  Report Type: Spontaneous
  Country: IL (occurrence: IL)
  Receive Date: 20191116
  Receipt Date: 20191116
  Transmission Date: 20200122
  Serious: Yes (Life-Threatening)
  Sender: FDA-Public Use
  Company Number: IL-ROCHE-2463050

PATIENT
  Age: 6 Year
  Sex: Male

DRUGS (2)
  1. MABTHERA [Suspect]
     Active Substance: RITUXIMAB
     Indication: HISTIOCYTOSIS
     Route: 065
     Dates: start: 20191028
  2. MABTHERA [Suspect]
     Active Substance: RITUXIMAB
     Indication: LYMPHADENOPATHY

REACTIONS (6)
  - Dyspnoea [Unknown]
  - Off label use [Unknown]
  - Intentional product use issue [Unknown]
  - Cyanosis [Unknown]
  - Swelling face [Unknown]
  - Erythema [Unknown]

NARRATIVE: CASE EVENT DATE: 20191028
